FAERS Safety Report 23428083 (Version 2)
Quarter: 2024Q1

REPORT INFORMATION
  Report Type: Spontaneous
  Country: JP (occurrence: JP)
  Receive Date: 20240122
  Receipt Date: 20240229
  Transmission Date: 20240409
  Serious: Yes (Other)
  Sender: FDA-Public Use
  Company Number: JP-MYLANLABS-2024M1004874

PATIENT
  Age: 67 Year
  Sex: Male

DRUGS (4)
  1. CARBOPLATIN [Suspect]
     Active Substance: CARBOPLATIN
     Indication: Bronchioloalveolar carcinoma
     Dosage: UNK
     Route: 042
  2. PACLITAXEL [Suspect]
     Active Substance: PACLITAXEL
     Indication: Bronchioloalveolar carcinoma
     Dosage: UNK
     Route: 065
  3. DURVALUMAB [Suspect]
     Active Substance: DURVALUMAB
     Indication: Bronchioloalveolar carcinoma
     Dosage: UNK
     Route: 065
  4. TREMELIMUMAB [Suspect]
     Active Substance: TREMELIMUMAB
     Indication: Bronchioloalveolar carcinoma
     Dosage: UNK
     Route: 065

REACTIONS (1)
  - Tubulointerstitial nephritis [Unknown]
